FAERS Safety Report 24406793 (Version 1)
Quarter: 2024Q4

REPORT INFORMATION
  Report Type: Report from Study
  Country: GB (occurrence: GB)
  Receive Date: 20241007
  Receipt Date: 20241007
  Transmission Date: 20250115
  Serious: Yes (Hospitalization, Other)
  Sender: SAMSUNG BIOEPIS
  Company Number: GB-SAMSUNG BIOEPIS-SB-2024-29640

PATIENT
  Age: 65 Year
  Sex: Male

DRUGS (1)
  1. IMRALDI [Suspect]
     Active Substance: ADALIMUMAB
     Indication: Ankylosing spondylitis
     Dosage: 40 MG/0.8 ML;
     Route: 058

REACTIONS (5)
  - Gallbladder disorder [Unknown]
  - Pancreatitis necrotising [Unknown]
  - Haematological infection [Unknown]
  - Post procedural bile leak [Unknown]
  - Illness [Unknown]
